FAERS Safety Report 7082668-7 (Version None)
Quarter: 2010Q4

REPORT INFORMATION
  Report Type: 
  Country: None (occurrence: None)
  Receive Date: 20101026
  Receipt Date: 20101011
  Transmission Date: 20110411
  Serious: Yes (Hospitalization)
  Sender: FDA-Public Use
  Company Number: 1000016336

PATIENT
  Age: 84 Year
  Sex: Female
  Weight: 68 kg

DRUGS (7)
  1. ESCITALOPRAM [Suspect]
     Indication: DEPRESSION
     Dosage: 10 MG (10 MG, 1 IN 1 D), ORAL
     Route: 048
     Dates: start: 20100520, end: 20100718
  2. TAREG (VALSARTAN) (VALSARTAN) [Concomitant]
  3. EUPRESSYL (URAPIDIL) (URAPIDIL) [Concomitant]
  4. SERESTA (OXAZEPAM) (OXAZEPAM) [Concomitant]
  5. MODOPAR (MADOPAR) (MADOPAR) [Concomitant]
  6. KARDEGIC (ACETYLSALICYLATE LYSINE) (ACETYLSALICYLATE LYSINE) [Concomitant]
  7. TRIVASTAL (PIRIBEDIL) (PIRIBEDIL) [Concomitant]

REACTIONS (4)
  - BALANCE DISORDER [None]
  - FALL [None]
  - GAIT DISTURBANCE [None]
  - ORTHOSTATIC HYPOTENSION [None]
